FAERS Safety Report 7269705-1 (Version None)
Quarter: 2011Q1

REPORT INFORMATION
  Report Type: 
  Country: None (occurrence: None)
  Receive Date: 20110202
  Receipt Date: 20110124
  Transmission Date: 20110831
  Serious: No
  Sender: FDA-Public Use
  Company Number: US-B.I. PHARMACEUTICALS,INC./RIDGEFIELD-2010-BP-14544BP

PATIENT
  Sex: Female

DRUGS (7)
  1. SPIRIVA [Suspect]
     Indication: CHRONIC OBSTRUCTIVE PULMONARY DISEASE
     Dosage: 18 MCG
     Route: 055
     Dates: start: 20100801, end: 20101001
  2. OSCAL [Concomitant]
     Dosage: 1250 MG
  3. GLUCOVANCE [Concomitant]
  4. ADVAIR [Concomitant]
     Dosage: 1 PUF
  5. FOSAMAX [Concomitant]
  6. DIOVAN [Concomitant]
  7. LANTUS [Concomitant]

REACTIONS (7)
  - DRUG HYPERSENSITIVITY [None]
  - PAIN [None]
  - WHEEZING [None]
  - LUNG DISORDER [None]
  - DYSPNOEA [None]
  - COUGH [None]
  - INSOMNIA [None]
